FAERS Safety Report 20546311 (Version 1)
Quarter: 2022Q1

REPORT INFORMATION
  Report Type: Spontaneous
  Country: TW (occurrence: None)
  Receive Date: 20220303
  Receipt Date: 20220303
  Transmission Date: 20220423
  Serious: Yes (Hospitalization, Other)
  Sender: FDA-Public Use
  Company Number: TW-ROCHE-3036888

PATIENT
  Age: 46 Year
  Sex: Male
  Weight: 41 kg

DRUGS (9)
  1. MABTHERA [Suspect]
     Active Substance: RITUXIMAB
     Indication: Rheumatoid arthritis
     Route: 041
     Dates: start: 20190104, end: 20220107
  2. CELEBREX [Concomitant]
     Active Substance: CELECOXIB
     Indication: Rheumatoid arthritis
     Route: 048
     Dates: start: 20120418
  3. PREDNISOLONE [Concomitant]
     Active Substance: PREDNISOLONE
     Indication: Rheumatoid arthritis
     Route: 048
     Dates: start: 20200214
  4. CEFTRIAXONE [Concomitant]
     Active Substance: CEFTRIAXONE
  5. METRONIDAZOLE [Concomitant]
     Active Substance: METRONIDAZOLE
  6. PLAQUENIL [Concomitant]
     Active Substance: HYDROXYCHLOROQUINE SULFATE
     Dosage: 200 MG TWICE A DAILY
  7. SULFASALAZINE [Concomitant]
     Active Substance: SULFASALAZINE
     Dosage: 500 MG TWICE DAILY
  8. GINGONIN [Concomitant]
     Dosage: 0 MG THREE TIMES A DAY
  9. FOLIC ACID [Concomitant]
     Active Substance: FOLIC ACID
     Dosage: 5 MG DAILY

REACTIONS (5)
  - Cholecystitis acute [Recovering/Resolving]
  - Septic shock [Recovering/Resolving]
  - Acquired immunodeficiency syndrome [Not Recovered/Not Resolved]
  - Bicytopenia [Unknown]
  - Acute kidney injury [Unknown]

NARRATIVE: CASE EVENT DATE: 20220127
